FAERS Safety Report 20689259 (Version 3)
Quarter: 2022Q3

REPORT INFORMATION
  Report Type: Spontaneous
  Country: JP (occurrence: JP)
  Receive Date: 20220408
  Receipt Date: 20220706
  Transmission Date: 20221027
  Serious: No
  Sender: FDA-Public Use
  Company Number: JP-GLAXOSMITHKLINE-JP2022JPN059261

PATIENT

DRUGS (3)
  1. SOTROVIMAB [Suspect]
     Active Substance: SOTROVIMAB
     Indication: COVID-19
     Dosage: 500 MG/DAY
     Route: 042
     Dates: start: 20220331, end: 20220331
  2. COMIRNATY [Suspect]
     Active Substance: TOZINAMERAN
     Dosage: 0.3 ML/DAY
     Route: 030
     Dates: start: 20210927
  3. COMIRNATY [Suspect]
     Active Substance: TOZINAMERAN
     Dosage: 0.3 ML/DAY
     Route: 030
     Dates: start: 20211018

REACTIONS (2)
  - Caesarean section [Unknown]
  - Exposure during pregnancy [Unknown]

NARRATIVE: CASE EVENT DATE: 20220420
